FAERS Safety Report 23655249 (Version 2)
Quarter: 2024Q1

REPORT INFORMATION
  Report Type: Spontaneous
  Country: JP (occurrence: JP)
  Receive Date: 20240320
  Receipt Date: 20240326
  Transmission Date: 20240409
  Serious: Yes (Other)
  Sender: FDA-Public Use
  Company Number: JP-MSD-M2024-09633

PATIENT
  Age: 7 Decade
  Sex: Female

DRUGS (1)
  1. KEYTRUDA [Suspect]
     Active Substance: PEMBROLIZUMAB
     Indication: Triple negative breast cancer
     Dosage: 200 MILLIGRAM, Q3W
     Route: 041

REACTIONS (6)
  - Malignant neoplasm progression [Unknown]
  - Renal impairment [Unknown]
  - Anaemia [Unknown]
  - Aplasia pure red cell [Unknown]
  - Arthritis [Unknown]
  - Platelet count decreased [Unknown]
